FAERS Safety Report 23137134 (Version 6)
Quarter: 2024Q1

REPORT INFORMATION
  Report Type: Spontaneous
  Country: AU (occurrence: None)
  Receive Date: 20231102
  Receipt Date: 20240125
  Transmission Date: 20240409
  Serious: Yes (Other)
  Sender: FDA-Public Use
  Company Number: AU-ROCHE-3445405

PATIENT
  Sex: Male

DRUGS (6)
  1. VABYSMO [Suspect]
     Active Substance: FARICIMAB\FARICIMAB-SVOA
     Indication: Neovascular age-related macular degeneration
     Route: 065
  2. METFORMIN [Concomitant]
     Active Substance: METFORMIN HYDROCHLORIDE
  3. RAMIPRIL [Concomitant]
     Active Substance: RAMIPRIL
  4. ATROPINE [Concomitant]
     Active Substance: ATROPINE\ATROPINE SULFATE
     Route: 061
  5. MAXIDEX [Concomitant]
     Active Substance: DEXAMETHASONE
     Route: 061
  6. VANCOMYCIN [Concomitant]
     Active Substance: VANCOMYCIN
     Route: 042

REACTIONS (7)
  - Retinal occlusive vasculitis [Unknown]
  - Optic disc haemorrhage [Unknown]
  - Uveitis [Unknown]
  - Vitritis [Unknown]
  - Diabetic retinopathy [Unknown]
  - Cystoid macular oedema [Unknown]
  - Cataract subcapsular [Unknown]
